FAERS Safety Report 13993013 (Version 3)
Quarter: 2018Q1

REPORT INFORMATION
  Report Type: Spontaneous
  Country: US (occurrence: US)
  Receive Date: 20170920
  Receipt Date: 20180208
  Transmission Date: 20180508
  Serious: Yes (Death, Other)
  Sender: FDA-Public Use
  Company Number: US-PFIZER INC-2017406485

PATIENT
  Age: 65 Year
  Sex: Male

DRUGS (25)
  1. FUROSEMIDE. [Concomitant]
     Active Substance: FUROSEMIDE
     Dosage: UNK UNK, 2X/DAY (1-1/2 40MG/MORNING; EVENING)
  2. COREG [Concomitant]
     Active Substance: CARVEDILOL
     Dosage: 6.25 MG, 2X/DAY (MORNING W/FOOD; EVENING W/FOOD)
  3. SPIRONOLACTONE. [Concomitant]
     Active Substance: SPIRONOLACTONE
     Dosage: UNK, 2X/DAY, (1/2 25-MG TWICE DAILY)MORNING W/FOOD; EVENING W/FOOD
  4. MIRALAX [Concomitant]
     Active Substance: POLYETHYLENE GLYCOL 3350
     Dosage: UNK, ALTERNATE DAY (1 W/4 OZ WATER; MORNING (ALTERNATE EOD))
  5. LORTAB [Concomitant]
     Active Substance: ACETAMINOPHEN\HYDROCODONE BITARTRATE
     Dosage: 1 DF, AS NEEDED (1-TABLET 4-6 HOURS PRN)
  6. PHENERGAN [Concomitant]
     Active Substance: PROMETHAZINE HYDROCHLORIDE
     Indication: NAUSEA
     Dosage: UNK, AS NEEDED
  7. VENTOLIN [Concomitant]
     Active Substance: ALBUTEROL SULFATE
     Dosage: 2 DF, EVERY 4 HRS (2 PUFFS EVERY 4 HRS)
  8. ELIQUIS [Concomitant]
     Active Substance: APIXABAN
     Dosage: 5 MG, 2X/DAY (MORNING; EVENING)
  9. METFORMIN [Concomitant]
     Active Substance: METFORMIN HYDROCHLORIDE
     Dosage: 850 MG, 2X/DAY (MORNING W/FOOD; EVENING W/FOOD)
  10. REVATIO [Suspect]
     Active Substance: SILDENAFIL CITRATE
     Indication: HYPERTENSION
     Dosage: 20 MG, 3X/DAY (MORNING/ LUNCH/EVENING)
     Dates: start: 2015, end: 20170816
  11. POTASSIUM CHLORIDE. [Concomitant]
     Active Substance: POTASSIUM CHLORIDE
     Dosage: 20 MG, 2X/DAY (MORNING W/FOOD; EVENING W/FOOD)
  12. SLOW MAG [Concomitant]
     Active Substance: MAGNESIUM CHLORIDE
     Dosage: 1 DF, 2X/DAY (MORNING W/FOOD; EVENING W/FOOD)
  13. ROBINUL [Concomitant]
     Active Substance: GLYCOPYRROLATE
     Indication: SECRETION DISCHARGE
     Dosage: UNK, AS NEEDED
  14. IRON [Concomitant]
     Active Substance: IRON
     Dosage: 325 MG, 1X/DAY (MORNING)
  15. SYMBICORT [Concomitant]
     Active Substance: BUDESONIDE\FORMOTEROL FUMARATE DIHYDRATE
     Dosage: UNK, 2X/DAY (2 PUFFS/TWICE DAILY) MORNING; EVENING
  16. ROSUVASTATIN. [Concomitant]
     Active Substance: ROSUVASTATIN
     Dosage: 20 MG, ALTERNATE DAY (MORNING; EVENING)
  17. FAMOTIDINE. [Concomitant]
     Active Substance: FAMOTIDINE
     Dosage: 40 MG, DAILY (2 TABS DAILY/EVENING )
  18. STOOL SOFTENER (DOCUSATE) [Concomitant]
     Active Substance: DOCUSATE
     Dosage: UNK, AS NEEDED (1-3 DAILY AS NEEDED) MORNING (ALTERNATE EOD)
  19. ZYRTEC [Concomitant]
     Active Substance: CETIRIZINE HYDROCHLORIDE
     Dosage: 10 MG, 1X/DAY (MORNING)
  20. VERAPAMIL [Concomitant]
     Active Substance: VERAPAMIL HYDROCHLORIDE
     Dosage: 240 MG, 2X/DAY (MORNING W/FOOD; EVENING W/FOOD)
  21. MORPHINE SULPHATE [Concomitant]
     Active Substance: MORPHINE SULFATE
     Indication: DYSPNOEA
     Dosage: UNK, AS NEEDED(AS NEEDED FOR SHORTNESS OF BREATH)
  22. OXYGEN. [Concomitant]
     Active Substance: OXYGEN
     Dosage: UNK, (24HR@ 5 RESTING/6ACTIVE)
  23. VITAMIN D [Concomitant]
     Active Substance: CHOLECALCIFEROL
     Dosage: 1000 IU, DAILY (MORNING)
  24. PREDNISONE. [Concomitant]
     Active Substance: PREDNISONE
     Dosage: 10 MG, 1X/DAY (4 REFILLS)
  25. ATIVAN [Concomitant]
     Active Substance: LORAZEPAM
     Indication: ANXIETY
     Dosage: UNK, AS NEEDED (AS NEEDED FOR ANXIETY)

REACTIONS (1)
  - Death [Fatal]

NARRATIVE: CASE EVENT DATE: 20170818
